FAERS Safety Report 20922594 (Version 1)
Quarter: 2022Q2

REPORT INFORMATION
  Report Type: Spontaneous
  Country: US (occurrence: US)
  Receive Date: 20220607
  Receipt Date: 20220607
  Transmission Date: 20220721
  Serious: Yes (Other)
  Sender: FDA-Public Use
  Company Number: US-STRIDES ARCOLAB LIMITED-2022SP003391

PATIENT
  Age: 55 Year
  Sex: Male

DRUGS (9)
  1. PREDNISOLONE [Suspect]
     Active Substance: PREDNISOLONE
     Indication: Gastritis
     Dosage: UNK
     Route: 065
  2. PREDNISOLONE [Suspect]
     Active Substance: PREDNISOLONE
     Dosage: UNK (DOSE TAPERED)
     Route: 065
  3. NIVOLUMAB [Suspect]
     Active Substance: NIVOLUMAB
     Indication: Clear cell renal cell carcinoma
     Dosage: UNK
     Route: 065
  4. METHYLPREDNISOLONE [Suspect]
     Active Substance: METHYLPREDNISOLONE
     Indication: Gastritis
     Dosage: 2 MILLIGRAM/KILOGRAM
     Route: 065
  5. METHYLPREDNISOLONE [Suspect]
     Active Substance: METHYLPREDNISOLONE
     Dosage: UNK (DOSE TAPERED)
     Route: 065
  6. INFLIXIMAB [Suspect]
     Active Substance: INFLIXIMAB
     Indication: Immune-mediated adverse reaction
     Dosage: 5 MILLIGRAM/KILOGRAM
     Route: 065
  7. FAMOTIDINE [Concomitant]
     Active Substance: FAMOTIDINE
     Indication: Chronic gastritis
     Dosage: UNK
     Route: 065
  8. PANTOPRAZOLE [Concomitant]
     Active Substance: PANTOPRAZOLE
     Indication: Chronic gastritis
     Dosage: UNK
     Route: 065
  9. SUCRALFATE [Concomitant]
     Active Substance: SUCRALFATE
     Indication: Chronic gastritis
     Dosage: UNK
     Route: 065

REACTIONS (2)
  - Cytomegalovirus gastritis [Recovered/Resolved]
  - Cytomegalovirus infection [Recovered/Resolved]
